FAERS Safety Report 21450530 (Version 2)
Quarter: 2022Q4

REPORT INFORMATION
  Report Type: Spontaneous
  Country: US (occurrence: None)
  Receive Date: 20221013
  Receipt Date: 20221104
  Transmission Date: 20230112
  Serious: No
  Sender: FDA-Public Use
  Company Number: 2022A339576

PATIENT
  Age: 84 Year
  Sex: Female
  Weight: 99.8 kg

DRUGS (1)
  1. SYMBICORT [Suspect]
     Active Substance: BUDESONIDE\FORMOTEROL FUMARATE DIHYDRATE
     Indication: Chronic obstructive pulmonary disease
     Dosage: ONE PUFF TWICE A DAY
     Route: 055
     Dates: start: 20220911

REACTIONS (5)
  - Gait disturbance [Not Recovered/Not Resolved]
  - Extra dose administered [Recovered/Resolved]
  - Off label use [Not Recovered/Not Resolved]
  - Product use issue [Unknown]
  - Device malfunction [Recovered/Resolved]

NARRATIVE: CASE EVENT DATE: 20220911
